FAERS Safety Report 6421408-9 (Version None)
Quarter: 2009Q4

REPORT INFORMATION
  Report Type: 
  Country: None (occurrence: None)
  Receive Date: 20091030
  Receipt Date: 20091027
  Transmission Date: 20100525
  Serious: Yes (Hospitalization, Other)
  Sender: FDA-Public Use
  Company Number: FR-BRISTOL-MYERS SQUIBB COMPANY-14504203

PATIENT
  Age: 63 Year
  Sex: Male

DRUGS (6)
  1. ELISOR TABS [Suspect]
     Route: 048
  2. PROGRAF [Suspect]
     Indication: HEART TRANSPLANT REJECTION
  3. CELLCEPT [Suspect]
  4. SOLUPRED [Suspect]
  5. EUPHYLLINE [Suspect]
  6. ICAZ [Suspect]

REACTIONS (6)
  - CHOLESTASIS [None]
  - DIARRHOEA [None]
  - GOUT [None]
  - MICROANGIOPATHIC HAEMOLYTIC ANAEMIA [None]
  - RENAL FAILURE ACUTE [None]
  - VOMITING [None]
